FAERS Safety Report 23810287 (Version 1)
Quarter: 2024Q2

REPORT INFORMATION
  Report Type: Other
  Country: US (occurrence: None)
  Receive Date: 20240502
  Receipt Date: 20240502
  Transmission Date: 20240717
  Serious: Yes (Hospitalization, Other)
  Sender: FDA-Public Use
  Company Number: US-ROCHE-3550636

PATIENT
  Age: 57 Year
  Sex: Female

DRUGS (2)
  1. OCREVUS [Suspect]
     Active Substance: OCRELIZUMAB
     Indication: Primary progressive multiple sclerosis
     Dosage: MOST RECENT INFUSION: 19/APR/2024
     Route: 042
     Dates: start: 20181116
  2. AMOXICILLIN [Concomitant]
     Active Substance: AMOXICILLIN
     Dates: end: 20240418

REACTIONS (2)
  - Infection [Unknown]
  - Urinary tract infection [Unknown]
